FAERS Safety Report 25180938 (Version 1)
Quarter: 2025Q2

REPORT INFORMATION
  Report Type: Spontaneous
  Country: DK (occurrence: DK)
  Receive Date: 20250409
  Receipt Date: 20250409
  Transmission Date: 20250717
  Serious: Yes (Death)
  Sender: ABBVIE
  Company Number: DK-ABBVIE-6220334

PATIENT
  Age: 89 Year
  Sex: Male
  Weight: 63 kg

DRUGS (6)
  1. IBRUTINIB [Suspect]
     Active Substance: IBRUTINIB
     Indication: Neoplasm malignant
     Route: 048
     Dates: start: 20201027
  2. OBINUTUZUMAB [Suspect]
     Active Substance: OBINUTUZUMAB
     Indication: Chronic lymphocytic leukaemia
     Route: 042
     Dates: start: 20160602
  3. DUTASTERIDE [Concomitant]
     Active Substance: DUTASTERIDE
     Indication: Benign prostatic hyperplasia
     Route: 048
     Dates: start: 20080205
  4. ACYCLOVIR [Concomitant]
     Active Substance: ACYCLOVIR
     Indication: Benign prostatic hyperplasia
     Route: 048
     Dates: start: 20160825
  5. MOMETASONE [Concomitant]
     Active Substance: MOMETASONE
     Indication: Rash
     Route: 062
     Dates: start: 20170920
  6. CHLORAMBUCIL [Suspect]
     Active Substance: CHLORAMBUCIL
     Indication: Chronic lymphocytic leukaemia
     Route: 048
     Dates: start: 20160602

REACTIONS (1)
  - Colon cancer [Fatal]

NARRATIVE: CASE EVENT DATE: 20250209
